FAERS Safety Report 6047995-0 (Version None)
Quarter: 2009Q1

REPORT INFORMATION
  Report Type: 
  Country: None (occurrence: None)
  Receive Date: 20090123
  Receipt Date: 20090119
  Transmission Date: 20090719
  Serious: Yes (Life-Threatening, Disabling)
  Sender: FDA-Public Use
  Company Number: PHHY2009DK01861

PATIENT
  Sex: Female

DRUGS (2)
  1. VOLTAREN [Suspect]
     Indication: MIGRAINE
     Dosage: 1 TAB/DAY
     Dates: start: 19980419
  2. DICLOFENAC RAPID [Suspect]
     Indication: MIGRAINE
     Dosage: 1 TAB/DAY
     Dates: start: 19980419

REACTIONS (4)
  - ASTHENIA [None]
  - CEREBROVASCULAR ACCIDENT [None]
  - CONVULSION [None]
  - SYNCOPE [None]
